FAERS Safety Report 9271262 (Version 1)
Quarter: 2013Q2

REPORT INFORMATION
  Report Type: Spontaneous
  Country: BR (occurrence: BR)
  Receive Date: 20130506
  Receipt Date: 20130506
  Transmission Date: 20140414
  Serious: Yes (Disabling, Other)
  Sender: FDA-Public Use
  Company Number: BR-ELI_LILLY_AND_COMPANY-BR201208007127

PATIENT
  Age: 70 Year
  Sex: Female
  Weight: 76 kg

DRUGS (3)
  1. FORTEO [Suspect]
     Indication: OSTEOPOROSIS
     Dosage: 20 UG, QD
     Route: 058
  2. ENBREL [Concomitant]
     Indication: RHEUMATIC DISORDER
     Dosage: UNK, UNKNOWN
     Route: 065
  3. CORTISONE [Concomitant]
     Dosage: UNK, UNKNOWN
     Route: 065

REACTIONS (16)
  - Fall [Recovering/Resolving]
  - Lower limb fracture [Recovering/Resolving]
  - Foot fracture [Recovering/Resolving]
  - Feeding disorder [Unknown]
  - Gait disturbance [Unknown]
  - Movement disorder [Unknown]
  - Ligament sprain [Recovering/Resolving]
  - Limb discomfort [Recovering/Resolving]
  - Bone fissure [Recovering/Resolving]
  - Urinary tract infection [Unknown]
  - Gastrointestinal infection [Unknown]
  - Weight increased [Not Recovered/Not Resolved]
  - Local swelling [Unknown]
  - Joint swelling [Unknown]
  - Limb injury [Unknown]
  - Joint injury [Unknown]
